FAERS Safety Report 18192260 (Version 2)
Quarter: 2020Q3

REPORT INFORMATION
  Report Type: Spontaneous
  Country: US (occurrence: US)
  Receive Date: 20200825
  Receipt Date: 20200827
  Transmission Date: 20201103
  Serious: No
  Sender: FDA-Public Use
  Company Number: US-PFIZER INC-2020327711

PATIENT
  Sex: Female

DRUGS (2)
  1. CLINDAMYCIN PHOSPHATE. [Suspect]
     Active Substance: CLINDAMYCIN PHOSPHATE
     Indication: ANTI-INFECTIVE THERAPY
     Dosage: UNK
     Dates: start: 20200812, end: 20200816
  2. CLINDAMYCIN PHOSPHATE. [Suspect]
     Active Substance: CLINDAMYCIN PHOSPHATE
     Dosage: UNK
     Dates: start: 20200816, end: 20200818

REACTIONS (4)
  - Peripheral swelling [Unknown]
  - Joint swelling [Unknown]
  - Pain in extremity [Unknown]
  - Arthralgia [Not Recovered/Not Resolved]

NARRATIVE: CASE EVENT DATE: 20200814
